FAERS Safety Report 5359021-7 (Version None)
Quarter: 2007Q2

REPORT INFORMATION
  Report Type: 
  Country: None (occurrence: None)
  Receive Date: 20070615
  Receipt Date: 20070608
  Transmission Date: 20071010
  Serious: Yes (Other)
  Sender: FDA-Public Use
  Company Number: GR-MERCK-0706GRC00006

PATIENT
  Age: 67 Year
  Sex: Male

DRUGS (8)
  1. INVANZ [Suspect]
     Indication: ENTEROBACTER BACTERAEMIA
     Route: 042
     Dates: start: 20070514, end: 20070514
  2. SULFAMETHOXAZOLE AND TRIMETHOPRIM [Suspect]
     Indication: ENTEROBACTER BACTERAEMIA
     Route: 048
     Dates: start: 20070515, end: 20070515
  3. ASPIRIN [Concomitant]
     Route: 048
  4. IRBESARTAN [Concomitant]
     Route: 048
  5. LIPITOR [Concomitant]
     Route: 048
  6. ACETYLCYSTEINE [Concomitant]
     Route: 048
  7. PRILOSEC [Concomitant]
     Route: 048
  8. CARVEDILOL [Concomitant]
     Route: 048

REACTIONS (1)
  - PURPURA [None]
